FAERS Safety Report 9921117 (Version 1)
Quarter: 2014Q1

REPORT INFORMATION
  Report Type: Report from Study
  Country: US (occurrence: US)
  Receive Date: 20140225
  Receipt Date: 20140225
  Transmission Date: 20141002
  Serious: Yes (Other)
  Sender: FDA-Public Use
  Company Number: US-ROCHE-1333558

PATIENT
  Age: 83 Year
  Sex: Female

DRUGS (6)
  1. LUCENTIS [Suspect]
     Indication: AGE-RELATED MACULAR DEGENERATION
     Route: 050
     Dates: start: 20110926
  2. AVASTIN [Suspect]
     Indication: AGE-RELATED MACULAR DEGENERATION
     Route: 065
     Dates: start: 201007
  3. LUTEIN [Concomitant]
     Route: 065
  4. VITAMIN C [Concomitant]
     Route: 065
  5. VITAMIN E [Concomitant]
     Route: 065
  6. ERYTHROMYCIN [Concomitant]
     Dosage: X 1
     Route: 065

REACTIONS (3)
  - Macular oedema [Unknown]
  - Visual impairment [Unknown]
  - Off label use [Unknown]
